FAERS Safety Report 17657102 (Version 1)
Quarter: 2020Q2

REPORT INFORMATION
  Report Type: Spontaneous
  Country: US (occurrence: US)
  Receive Date: 20200410
  Receipt Date: 20200410
  Transmission Date: 20200713
  Serious: Yes (Other)
  Sender: FDA-Public Use
  Company Number: US-TEVA-2020-US-1219935

PATIENT
  Sex: Female

DRUGS (1)
  1. METRONIDAZOLE ACTAVIS [Suspect]
     Active Substance: METRONIDAZOLE
     Route: 065

REACTIONS (2)
  - Oesophageal rupture [Unknown]
  - Blister [Unknown]
